FAERS Safety Report 7494825-6 (Version None)
Quarter: 2011Q2

REPORT INFORMATION
  Report Type: 
  Country: None (occurrence: None)
  Receive Date: 20110520
  Receipt Date: 20110516
  Transmission Date: 20111010
  Serious: Yes (Other)
  Sender: FDA-Public Use
  Company Number: B0690674A

PATIENT
  Sex: Female

DRUGS (2)
  1. PAROXETINE HCL [Suspect]
     Indication: ANXIETY DISORDER
     Route: 065
  2. VALIUM [Concomitant]

REACTIONS (16)
  - THINKING ABNORMAL [None]
  - PSYCHOMOTOR HYPERACTIVITY [None]
  - FATIGUE [None]
  - GENERAL PHYSICAL HEALTH DETERIORATION [None]
  - AMNESIA [None]
  - TEETH BRITTLE [None]
  - WITHDRAWAL SYNDROME [None]
  - NAUSEA [None]
  - MALAISE [None]
  - SUICIDAL IDEATION [None]
  - HYPOGLYCAEMIA [None]
  - HEADACHE [None]
  - MUSCLE TWITCHING [None]
  - DRUG INEFFECTIVE [None]
  - DEPENDENCE [None]
  - VISION BLURRED [None]
